FAERS Safety Report 8845784 (Version 1)
Quarter: 2012Q4

REPORT INFORMATION
  Report Type: 
  Country: US (occurrence: US)
  Receive Date: 20121017
  Receipt Date: 20121017
  Transmission Date: 20130627
  Serious: Yes (Other)
  Sender: FDA-Public Use
  Company Number: US-PFIZER INC-2012256995

PATIENT
  Age: 58 Year
  Sex: Female
  Weight: 81.63 kg

DRUGS (1)
  1. LYRICA [Suspect]
     Indication: NEURALGIA
     Dosage: 50 mg, 2x/day
     Route: 048
     Dates: start: 2011, end: 20121001

REACTIONS (13)
  - Intervertebral disc protrusion [Unknown]
  - Nerve compression [Unknown]
  - Phlebitis [Unknown]
  - Thrombosis [Unknown]
  - Peripheral arterial occlusive disease [Unknown]
  - Contusion [Unknown]
  - Headache [Unknown]
  - Pain [Unknown]
  - Blood cholesterol abnormal [Unknown]
  - Creatinine urine [Unknown]
  - Antibody test positive [Unknown]
  - Anti-neuronal antibody [Unknown]
  - Weight decreased [Unknown]
